FAERS Safety Report 12416202 (Version 9)
Quarter: 2017Q1

REPORT INFORMATION
  Report Type: Spontaneous
  Country: US (occurrence: US)
  Receive Date: 20160530
  Receipt Date: 20170302
  Transmission Date: 20170428
  Serious: Yes (Hospitalization, Other)
  Sender: FDA-Public Use
  Company Number: US-PFIZER INC-2016267050

PATIENT
  Age: 52 Year
  Sex: Female
  Weight: 73 kg

DRUGS (6)
  1. IBRANCE [Suspect]
     Active Substance: PALBOCICLIB
     Dosage: 100 MG, CYCLIC (DAY 1-DAY 21, Q 28 DAYS)
     Route: 048
  2. IBRANCE [Suspect]
     Active Substance: PALBOCICLIB
     Indication: BREAST CANCER METASTATIC
     Dosage: 125 MG, CYCLIC (DAYS 1-21 Q28 DAYS)
     Route: 048
     Dates: start: 20160502, end: 2016
  3. IBRANCE [Suspect]
     Active Substance: PALBOCICLIB
     Dosage: 100 MG, CYCLIC(DAY 1-21 Q 28 DAYS)
     Route: 048
     Dates: start: 20160502, end: 201612
  4. IBRANCE [Suspect]
     Active Substance: PALBOCICLIB
     Dosage: 100 MG, CYCLIC (DAYS 1-21 Q 28 DAYS)
     Route: 048
     Dates: end: 201702
  5. IBRANCE [Suspect]
     Active Substance: PALBOCICLIB
     Dosage: 100 MG, CYCLIC (DAYS 1-21 Q 28 DAYS)
     Route: 048
  6. IBRANCE [Suspect]
     Active Substance: PALBOCICLIB
     Dosage: 100 MG, CYCLIC (DAY 1-DAY 21, Q 28 DAYS)
     Route: 048

REACTIONS (26)
  - Vomiting [Unknown]
  - Panic attack [Unknown]
  - Thrombosis [Unknown]
  - Pruritus generalised [Unknown]
  - Condition aggravated [Unknown]
  - Diarrhoea [Unknown]
  - Skin discolouration [Unknown]
  - Generalised tonic-clonic seizure [Unknown]
  - Dehydration [Unknown]
  - Cystitis [Unknown]
  - Gout [Unknown]
  - Malaise [Unknown]
  - Agitation [Unknown]
  - Hallucination [Unknown]
  - Skin haemorrhage [Unknown]
  - Nausea [Unknown]
  - Fatigue [Unknown]
  - Dysstasia [Not Recovered/Not Resolved]
  - Pruritus [Unknown]
  - Fungal infection [Unknown]
  - Delusion [Unknown]
  - Stomatitis [Unknown]
  - Gait disturbance [Not Recovered/Not Resolved]
  - Scratch [Unknown]
  - Rash [Unknown]
  - Sleep disorder [Unknown]

NARRATIVE: CASE EVENT DATE: 20161012
